FAERS Safety Report 5712533-6 (Version None)
Quarter: 2008Q2

REPORT INFORMATION
  Report Type: 
  Country: None (occurrence: None)
  Receive Date: 20080418
  Receipt Date: 20080410
  Transmission Date: 20081010
  Serious: Yes (Other)
  Sender: FDA-Public Use
  Company Number: CHPA2008US06500

PATIENT
  Age: 75 Year
  Sex: Male

DRUGS (3)
  1. BENEFIBER FIBER SUPP VIT B + FOLIC ACID  (WHEAT DEXTRIN) [Suspect]
     Indication: CONSTIPATION
     Dosage: 1 TSP,QD,ORAL
     Route: 048
  2. ASPIRIN [Concomitant]
  3. ANTIHYPERTENSIVE        (NO INGREDIENTS/SUBSTANCES) [Concomitant]

REACTIONS (4)
  - ABDOMINAL DISTENSION [None]
  - CARDIAC OPERATION [None]
  - FLATULENCE [None]
  - INTESTINAL OBSTRUCTION [None]
